FAERS Safety Report 21647785 (Version 1)
Quarter: 2022Q4

REPORT INFORMATION
  Report Type: Spontaneous
  Country: IL (occurrence: IL)
  Receive Date: 20221128
  Receipt Date: 20221128
  Transmission Date: 20230113
  Serious: Yes (Death)
  Sender: FDA-Public Use
  Company Number: IL-JNJFOC-20221145337

PATIENT
  Age: 50 Year
  Sex: Male

DRUGS (1)
  1. ESKETAMINE [Suspect]
     Active Substance: ESKETAMINE
     Indication: Product used for unknown indication
     Dosage: TREATED WITH ESKETAMINE FOR 3 YEARS
     Dates: start: 2019

REACTIONS (2)
  - Death [Fatal]
  - Malaise [Unknown]
